FAERS Safety Report 4401299-8 (Version None)
Quarter: 2004Q3

REPORT INFORMATION
  Report Type: 
  Country: None (occurrence: None)
  Receive Date: 20040907
  Receipt Date: 20040218
  Transmission Date: 20050211
  Serious: No
  Sender: FDA-Public Use
  Company Number: US-BRISTOL-MYERS SQUIBB COMPANY-12510442

PATIENT
  Age: 58 Year
  Sex: Female
  Weight: 68 kg

DRUGS (13)
  1. COUMADIN [Suspect]
     Indication: MYOCARDIAL INFARCTION
     Dosage: 2MG, 2 TABLETS = 4MG ONCE DAILY.
     Route: 048
     Dates: start: 19961101
  2. COUMADIN [Suspect]
     Indication: HEART VALVE REPLACEMENT
     Dosage: 2MG, 2 TABLETS = 4MG ONCE DAILY.
     Route: 048
     Dates: start: 19961101
  3. ACCUPRIL [Concomitant]
     Dosage: TAKEN FOR ^A LONG PERIOD OF TIME^
  4. NORVASC [Concomitant]
     Dosage: TAKEN FOR ^A LONG PERIOD OF TIME^
  5. TRACLEER [Concomitant]
     Dosage: TAKEN FOR ^A LONG PERIOD OF TIME^
  6. VITAMIN C [Concomitant]
     Dosage: TAKEN FOR ^A LONG PERIOD OF TIME^
  7. VITAMIN E [Concomitant]
     Dosage: TAKEN FOR ^A LONG PERIOD OF TIME^
  8. BETA CAROTENE [Concomitant]
     Dosage: TAKEN FOR ^A LONG PERIOD OF TIME^
  9. SELENIUM TRACE METAL ADDITIVE [Concomitant]
     Dosage: TAKEN FOR ^A LONG PERIOD OF TIME^
  10. HIGH POTENCY VITAMINS [Concomitant]
     Dosage: TAKEN FOR ^A LONG PERIOD OF TIME^
  11. COENZYME Q10 [Concomitant]
     Dosage: TAKEN FOR ^A LONG PERIOD OF TIME^
  12. CALCIUM [Concomitant]
     Dosage: TAKEN FOR ^A LONG PERIOD OF TIME^
  13. FLAXSEED OIL [Concomitant]
     Dosage: INITIATED RECENTLY WITHIN THE PAST MONTH.
     Dates: start: 20040101

REACTIONS (1)
  - INTERNATIONAL NORMALISED RATIO DECREASED [None]
